FAERS Safety Report 18025058 (Version 1)
Quarter: 2020Q3

REPORT INFORMATION
  Report Type: Spontaneous
  Country: US (occurrence: US)
  Receive Date: 20200715
  Receipt Date: 20200715
  Transmission Date: 20201103
  Serious: No
  Sender: FDA-Public Use
  Company Number: US-PFIZER INC-2020268369

PATIENT
  Age: 81 Year
  Sex: Female

DRUGS (1)
  1. ZARONTIN [Suspect]
     Active Substance: ETHOSUXIMIDE
     Indication: EPILEPSY
     Dosage: 250 MG, 2X/DAY (250 MG 1 IN THE MORNING AND 1 IN THE EVENING)

REACTIONS (5)
  - Headache [Unknown]
  - Product odour abnormal [Unknown]
  - Malaise [Unknown]
  - Dyspnoea [Unknown]
  - Poor quality product administered [Unknown]
